FAERS Safety Report 24218068 (Version 1)
Quarter: 2024Q3

REPORT INFORMATION
  Report Type: Spontaneous
  Country: US (occurrence: None)
  Receive Date: 20240815
  Receipt Date: 20240815
  Transmission Date: 20241017
  Serious: Yes (Other)
  Sender: Public
  Company Number: None

PATIENT
  Sex: Male
  Weight: 67.5 kg

DRUGS (1)
  1. SOGROYA [Suspect]
     Active Substance: SOMAPACITAN-BECO
     Indication: Growth hormone deficiency
     Dosage: FREQUENCY : WEEKLY;?
     Route: 058

REACTIONS (3)
  - Skin lesion [None]
  - Injection site urticaria [None]
  - Injection site erythema [None]

NARRATIVE: CASE EVENT DATE: 20240724
